FAERS Safety Report 8574426-9 (Version None)
Quarter: 2012Q3

REPORT INFORMATION
  Report Type: 
  Country: None (occurrence: None)
  Receive Date: 20120806
  Receipt Date: 20120730
  Transmission Date: 20120928
  Serious: Yes (Other)
  Sender: FDA-Public Use
  Company Number: US-ABBOTT-12P-163-0962085-00

PATIENT
  Sex: Female
  Weight: 97.61 kg

DRUGS (3)
  1. HUMIRA [Suspect]
     Indication: RHEUMATOID ARTHRITIS
     Route: 058
     Dates: start: 20061201, end: 20120401
  2. MANY UNKNOWN MEDICATIONS [Concomitant]
     Indication: PRODUCT USED FOR UNKNOWN INDICATION
  3. HUMIRA [Suspect]
     Dosage: HUMIRA 40 MG/0.8 ML PRE-FILLED SYRINGE
     Route: 058
     Dates: start: 20040101, end: 20061201

REACTIONS (5)
  - DRY GANGRENE [None]
  - RHEUMATOID ARTHRITIS [None]
  - PROTEUS INFECTION [None]
  - GANGRENE [None]
  - DIABETES MELLITUS [None]
